FAERS Safety Report 12546145 (Version 5)
Quarter: 2017Q3

REPORT INFORMATION
  Report Type: Report from Study
  Country: BR (occurrence: BR)
  Receive Date: 20160711
  Receipt Date: 20170829
  Transmission Date: 20171127
  Serious: Yes (Death, Hospitalization, Disabling, Other)
  Sender: FDA-Public Use
  Company Number: PHHY2016BR093972

PATIENT
  Age: 71 Year
  Sex: Female
  Weight: 60 kg

DRUGS (7)
  1. BACLOFENO [Concomitant]
     Indication: MUSCLE SPASMS
     Dosage: 2 DF (10 MG), BID (FOR MORE THAN 5 YEARS)
     Route: 048
  2. ALENDRONATO SODICO [Concomitant]
     Indication: OSTEOPOROSIS
     Dosage: 1 DF (70 MG), QW (FOR 6 YEARS)
     Route: 048
  3. METFORMINA//METFORMIN [Concomitant]
     Indication: DIABETES PROPHYLAXIS
     Dosage: 1 DF (850 MG), QD (FOR 5 YEARS)
     Route: 048
  4. DIAMOX SEQUELS [Concomitant]
     Active Substance: ACETAZOLAMIDE
     Indication: DIURETIC THERAPY
     Dosage: 1 DF (100 MG), QD (FOR 5 YEARS)
     Route: 048
  5. GILENYA [Suspect]
     Active Substance: FINGOLIMOD HYDROCHLORIDE
     Indication: MULTIPLE SCLEROSIS
     Dosage: 0.5 MG, QD
     Route: 048
     Dates: start: 201409, end: 201612
  6. LEVOTIROXINA [Concomitant]
     Active Substance: LEVOTHYROXINE SODIUM
     Indication: THYROID DISORDER
     Dosage: 1 DF (50 MG), QD (FOR 10 YEARS)
     Route: 048
  7. CARBAMAZEPINA [Concomitant]
     Active Substance: CARBAMAZEPINE
     Indication: MUSCLE SPASMS
     Dosage: 1 DF (200 MG) , QD (FOR MORE THAN 5 YEARS)
     Route: 048

REACTIONS (14)
  - Influenza [Recovered/Resolved]
  - Dehydration [Recovered/Resolved]
  - Hypophagia [Recovering/Resolving]
  - Depression [Recovering/Resolving]
  - Decubitus ulcer [Recovering/Resolving]
  - Asthenia [Recovering/Resolving]
  - Weight decreased [Unknown]
  - Pneumonia [Recovering/Resolving]
  - Choking [Recovering/Resolving]
  - Pneumonia [Recovered/Resolved]
  - Lung disorder [Unknown]
  - Multiple sclerosis [Fatal]
  - Malaise [Recovering/Resolving]
  - Pleural effusion [Recovered/Resolved]

NARRATIVE: CASE EVENT DATE: 2015
